FAERS Safety Report 5347524-0 (Version None)
Quarter: 2007Q2

REPORT INFORMATION
  Report Type: 
  Country: None (occurrence: None)
  Receive Date: 20070606
  Receipt Date: 20070525
  Transmission Date: 20071010
  Serious: Yes (Hospitalization)
  Sender: FDA-Public Use
  Company Number: JP-NOVOPROD-264007

PATIENT
  Sex: Female

DRUGS (1)
  1. NOVORAPID 30 MIX CHU [Suspect]
     Indication: INSULIN-REQUIRING TYPE II DIABETES MELLITUS
     Route: 058
     Dates: start: 20061020, end: 20070216

REACTIONS (1)
  - CEREBROVASCULAR ACCIDENT [None]
